FAERS Safety Report 16537361 (Version 3)
Quarter: 2019Q3

REPORT INFORMATION
  Report Type: Spontaneous
  Country: CL (occurrence: CL)
  Receive Date: 20190707
  Receipt Date: 20190802
  Transmission Date: 20191004
  Serious: Yes (Hospitalization)
  Sender: FDA-Public Use
  Company Number: CL-BIOGEN-2019BI00757504

PATIENT
  Age: 8 Year
  Sex: Female

DRUGS (3)
  1. SPINRAZA [Suspect]
     Active Substance: NUSINERSEN
     Route: 037
     Dates: start: 20190717
  2. SPINRAZA [Suspect]
     Active Substance: NUSINERSEN
     Dosage: SECOND DOSE
     Route: 037
     Dates: start: 20190703
  3. SPINRAZA [Suspect]
     Active Substance: NUSINERSEN
     Indication: SPINAL MUSCULAR ATROPHY
     Route: 037
     Dates: start: 2019

REACTIONS (9)
  - Cyanosis [Unknown]
  - Respiratory failure [Unknown]
  - Urinary retention [Unknown]
  - Bronchial obstruction [Unknown]
  - Mobility decreased [Unknown]
  - Scoliosis [Unknown]
  - Knee deformity [Unknown]
  - Urinary tract infection pseudomonal [Unknown]
  - Femur fracture [Unknown]

NARRATIVE: CASE EVENT DATE: 20190614
